FAERS Safety Report 9140890 (Version 3)
Quarter: 2013Q2

REPORT INFORMATION
  Report Type: Report from Study
  Country: JP (occurrence: JP)
  Receive Date: 20130305
  Receipt Date: 20130409
  Transmission Date: 20140414
  Serious: Yes (Other)
  Sender: FDA-Public Use
  Company Number: JP-OTSUKA-JP-2013-10551

PATIENT
  Age: 96 Year
  Sex: Male
  Weight: 61 kg

DRUGS (5)
  1. SAMSCA [Suspect]
     Indication: FLUID RETENTION
     Dosage: 15 MG MILLIGRAM(S), QAM
     Route: 048
     Dates: start: 20130206, end: 20130220
  2. FUROSEMIDE [Suspect]
     Indication: CARDIAC FAILURE
     Dosage: 20 MG MILLIGRAM(S), DAILY DOSE
     Route: 048
  3. PIROLACTON [Concomitant]
     Indication: CARDIAC FAILURE
     Dosage: 25 MG MILLIGRAM(S), DAILY DOSE
     Route: 048
  4. PLAVIX [Concomitant]
     Indication: CEREBRAL INFARCTION
     Dosage: 75 MG MILLIGRAM(S), DAILY DOSE
     Route: 048
  5. THYRADIN [Concomitant]
     Indication: CARDIAC FAILURE
     Dosage: 50 MCG, DAILY DOSE
     Route: 048

REACTIONS (3)
  - Blood urea increased [Unknown]
  - Hypernatraemia [Recovering/Resolving]
  - Dehydration [Recovering/Resolving]
